FAERS Safety Report 10945848 (Version 1)
Quarter: 2015Q1

REPORT INFORMATION
  Report Type: Report from Study
  Country: CO (occurrence: CO)
  Receive Date: 20150323
  Receipt Date: 20150323
  Transmission Date: 20150721
  Serious: Yes (Other)
  Sender: FDA-Public Use
  Company Number: CO-BAYER-2014-181211

PATIENT
  Age: 67 Year
  Sex: Male

DRUGS (7)
  1. BROMAZEPAM [Concomitant]
     Active Substance: BROMAZEPAM
  2. ENSURE [MINERALS NOS,VITAMINS NOS] [Concomitant]
  3. LOSARTAN [Concomitant]
     Active Substance: LOSARTAN
     Dosage: 100 MG, UNK
  4. METRONIDAZOL [Concomitant]
     Active Substance: METRONIDAZOLE
  5. MORPHINE [Concomitant]
     Active Substance: MORPHINE
  6. BEVACIZUMAB [Concomitant]
     Active Substance: BEVACIZUMAB
  7. NEXAVAR [Suspect]
     Active Substance: SORAFENIB
     Indication: RENAL CANCER
     Dosage: 400 MG, BID
     Route: 048
     Dates: start: 20120627

REACTIONS (8)
  - Urinary tract infection [Not Recovered/Not Resolved]
  - Joint injury [Not Recovered/Not Resolved]
  - Skeletal injury [Not Recovered/Not Resolved]
  - Weight decreased [Not Recovered/Not Resolved]
  - Palmar-plantar erythrodysaesthesia syndrome [Not Recovered/Not Resolved]
  - Renal pain [Not Recovered/Not Resolved]
  - Road traffic accident [Not Recovered/Not Resolved]
  - Nephrolithiasis [Not Recovered/Not Resolved]

NARRATIVE: CASE EVENT DATE: 2014
